FAERS Safety Report 11443388 (Version 1)
Quarter: 2015Q3

REPORT INFORMATION
  Report Type: Spontaneous
  Country: IL (occurrence: IL)
  Receive Date: 20150901
  Receipt Date: 20150901
  Transmission Date: 20151125
  Serious: Yes (Other)
  Sender: FDA-Public Use
  Company Number: IL-AMGEN-ISRSP2015084624

PATIENT
  Age: 34 Year
  Sex: Female

DRUGS (1)
  1. ENBREL [Suspect]
     Active Substance: ETANERCEPT
     Indication: RHEUMATOID ARTHRITIS
     Dosage: 50 MG, UNK
     Route: 065

REACTIONS (6)
  - Injection site swelling [Recovered/Resolved]
  - Injection site pruritus [Recovered/Resolved]
  - Injection site reaction [Recovered/Resolved]
  - Renal impairment [Unknown]
  - Injection site erythema [Recovered/Resolved]
  - Haematoma [Recovered/Resolved]
